FAERS Safety Report 5108110-0 (Version None)
Quarter: 2006Q3

REPORT INFORMATION
  Report Type: 
  Country: None (occurrence: None)
  Receive Date: 20060919
  Receipt Date: 20060828
  Transmission Date: 20061208
  Serious: Yes (Hospitalization)
  Sender: FDA-Public Use
  Company Number: US-GLAXOSMITHKLINE-A0618406A

PATIENT
  Age: 68 Year
  Sex: Male

DRUGS (5)
  1. DUTASTERIDE [Suspect]
     Indication: PROSTATE CANCER
     Route: 048
     Dates: start: 20031215
  2. HYDROCHLOROTHIAZIDE [Concomitant]
     Indication: BLOOD PRESSURE
     Dosage: 25MG PER DAY
     Route: 048
     Dates: start: 20040803
  3. TOPROL-XL [Concomitant]
     Indication: BLOOD PRESSURE
     Dosage: 1TAB PER DAY
     Route: 048
     Dates: start: 20060425
  4. ASCORBIC ACID [Concomitant]
     Indication: ROUTINE HEALTH MAINTENANCE
     Dosage: 1000MG PER DAY
     Route: 048
     Dates: start: 19930101
  5. MULTI-VITAMIN [Concomitant]
     Indication: ROUTINE HEALTH MAINTENANCE
     Dosage: 1TAB PER DAY
     Route: 048
     Dates: start: 19930101

REACTIONS (3)
  - CELLULITIS [None]
  - ERYTHEMA [None]
  - OEDEMA PERIPHERAL [None]
